FAERS Safety Report 25084343 (Version 2)
Quarter: 2025Q2

REPORT INFORMATION
  Report Type: Spontaneous
  Country: CN (occurrence: CN)
  Receive Date: 20250317
  Receipt Date: 20250608
  Transmission Date: 20250717
  Serious: Yes (Life-Threatening, Hospitalization, Other)
  Sender: COHERUS
  Company Number: CN-SHANGHAI JUNSHI BIOSCIENCES CO., LTD.-CN2025013380

PATIENT

DRUGS (3)
  1. TORIPALIMAB [Suspect]
     Active Substance: TORIPALIMAB
     Indication: Vulval cancer
     Route: 041
     Dates: start: 20250115, end: 20250115
  2. LOBAPLATIN [Suspect]
     Active Substance: LOBAPLATIN
     Indication: Vulval cancer
     Route: 041
     Dates: start: 20250115, end: 20250115
  3. LOBAPLATIN [Suspect]
     Active Substance: LOBAPLATIN
     Dosage: 40 MG, QD
     Route: 041
     Dates: start: 20250116, end: 20250117

REACTIONS (5)
  - Temperature intolerance [Recovering/Resolving]
  - Pyrexia [Recovered/Resolved]
  - Anaemia [Recovering/Resolving]
  - Platelet count decreased [Recovering/Resolving]
  - Myelosuppression [Recovering/Resolving]

NARRATIVE: CASE EVENT DATE: 20250218
